FAERS Safety Report 7170068-0 (Version None)
Quarter: 2010Q4

REPORT INFORMATION
  Report Type: 
  Country: None (occurrence: None)
  Receive Date: 20101214
  Receipt Date: 20101214
  Transmission Date: 20110411
  Serious: Yes (Hospitalization)
  Sender: FDA-Public Use
  Company Number: None

PATIENT
  Age: 32 Year
  Sex: Female
  Weight: 45.5 kg

DRUGS (1)
  1. TYSABRI [Suspect]
     Indication: MULTIPLE SCLEROSIS
     Dosage: 300MG IN 100ML EVERY 4 WEEKS IV
     Route: 042
     Dates: start: 20101126

REACTIONS (3)
  - CHEST PAIN [None]
  - DYSPNOEA [None]
  - INFUSION RELATED REACTION [None]
